FAERS Safety Report 4816065-9 (Version None)
Quarter: 2005Q4

REPORT INFORMATION
  Report Type: 
  Country: None (occurrence: None)
  Receive Date: 20051027
  Receipt Date: 20051024
  Transmission Date: 20060501
  Serious: Yes (Hospitalization)
  Sender: FDA-Public Use
  Company Number: 200511330BWH

PATIENT
  Age: 56 Year
  Sex: Female

DRUGS (1)
  1. AVELOX [Suspect]

REACTIONS (1)
  - ANAPHYLACTIC SHOCK [None]
